FAERS Safety Report 14519822 (Version 1)
Quarter: 2018Q1

REPORT INFORMATION
  Report Type: Spontaneous
  Country: US (occurrence: US)
  Receive Date: 20180210
  Receipt Date: 20180210
  Transmission Date: 20180509
  Serious: Yes (Other)
  Sender: FDA-Public Use
  Company Number: None

PATIENT
  Sex: Female
  Weight: 67.05 kg

DRUGS (8)
  1. CITRUCEL [Concomitant]
     Active Substance: METHYLCELLULOSE (4000 MPA.S)
  2. GUMMY MULTIVITAMIN [Concomitant]
  3. CALTRATE 600 +D2 [Concomitant]
  4. MYRBETRIQ [Suspect]
     Active Substance: MIRABEGRON
     Indication: HYPERTONIC BLADDER
     Dosage: ?          QUANTITY:30 TABLET(S);?
     Route: 048
     Dates: start: 20180205, end: 20180210
  5. LORATADINE. [Concomitant]
     Active Substance: LORATADINE
  6. FLUTICASONE PROPIONATE. [Concomitant]
     Active Substance: FLUTICASONE PROPIONATE
  7. DOXYLAMINE SUCCINATE. [Concomitant]
     Active Substance: DOXYLAMINE SUCCINATE
  8. YUVAFEN [Concomitant]

REACTIONS (3)
  - Epistaxis [None]
  - Tinnitus [None]
  - Hypertension [None]

NARRATIVE: CASE EVENT DATE: 20180210
